FAERS Safety Report 21160679 (Version 1)
Quarter: 2022Q3

REPORT INFORMATION
  Report Type: Spontaneous
  Country: FR (occurrence: FR)
  Receive Date: 20220802
  Receipt Date: 20220802
  Transmission Date: 20221026
  Serious: Yes (Life-Threatening, Hospitalization)
  Sender: FDA-Public Use
  Company Number: None

PATIENT
  Age: 26 Year
  Sex: Female
  Weight: 106 kg

DRUGS (7)
  1. AMITRIPTYLINE [Suspect]
     Active Substance: AMITRIPTYLINE
     Dosage: NR
     Dates: start: 20220523, end: 20220523
  2. LOXAPINE [Suspect]
     Active Substance: LOXAPINE
     Dosage: NR
     Dates: start: 20220523, end: 20220523
  3. CYAMEMAZINE [Suspect]
     Active Substance: CYAMEMAZINE
     Dosage: NR
     Dates: start: 20220523, end: 20220523
  4. ZOPICLONE [Suspect]
     Active Substance: ZOPICLONE
     Dosage: NR
     Dates: start: 20220523, end: 20220523
  5. VENLAFAXINE [Suspect]
     Active Substance: VENLAFAXINE HYDROCHLORIDE
     Dosage: NR
     Dates: start: 20220523, end: 20220523
  6. HYDROXYZINE HYDROCHLORIDE [Suspect]
     Active Substance: HYDROXYZINE HYDROCHLORIDE
     Dosage: NR
     Dates: start: 20220523, end: 20220523
  7. AMOXAPINE [Suspect]
     Active Substance: AMOXAPINE
     Dosage: NR
     Dates: start: 20220523, end: 20220523

REACTIONS (6)
  - Tachypnoea [Recovered/Resolved]
  - Poisoning deliberate [Unknown]
  - Hepatic cytolysis [Recovered/Resolved]
  - Tachycardia [Recovered/Resolved]
  - Coma [Recovered/Resolved]
  - Hyperglycaemia [Recovered/Resolved]

NARRATIVE: CASE EVENT DATE: 20220523
